FAERS Safety Report 7482152-2 (Version None)
Quarter: 2011Q2

REPORT INFORMATION
  Report Type: 
  Country: None (occurrence: None)
  Receive Date: 20110516
  Receipt Date: 20110509
  Transmission Date: 20111010
  Serious: No
  Sender: FDA-Public Use
  Company Number: US-PFIZER INC-2011100041

PATIENT
  Sex: Female
  Weight: 81.6 kg

DRUGS (2)
  1. LIPITOR [Suspect]
     Indication: HIGH DENSITY LIPOPROTEIN DECREASED
     Dosage: 20 MG, 1X/DAY
     Route: 048
     Dates: start: 20110501, end: 20110501
  2. LIPITOR [Suspect]
     Dosage: 20 MG, 1X/DAY
     Route: 048
     Dates: start: 20110508

REACTIONS (3)
  - NAUSEA [None]
  - HEADACHE [None]
  - SWELLING FACE [None]
